FAERS Safety Report 13643340 (Version 1)
Quarter: 2017Q2

REPORT INFORMATION
  Report Type: Spontaneous
  Country: US (occurrence: US)
  Receive Date: 20170612
  Receipt Date: 20170612
  Transmission Date: 20170830
  Serious: Yes (Death, Hospitalization)
  Sender: FDA-Public Use
  Company Number: US-B.I. PHARMACEUTICALS,INC./RIDGEFIELD-2017-BI-032996

PATIENT
  Sex: Female

DRUGS (1)
  1. PRADAXA [Suspect]
     Active Substance: DABIGATRAN ETEXILATE MESYLATE
     Indication: PRODUCT USED FOR UNKNOWN INDICATION
     Route: 065

REACTIONS (7)
  - Septic shock [Fatal]
  - Lactic acidosis [Fatal]
  - Upper gastrointestinal haemorrhage [Fatal]
  - Hypotension [Fatal]
  - Vomiting [Fatal]
  - Nausea [Fatal]
  - Vertigo labyrinthine [Fatal]
